FAERS Safety Report 9914415 (Version 2)
Quarter: 2014Q1

REPORT INFORMATION
  Report Type: Report from Study
  Country: US (occurrence: US)
  Receive Date: 20140220
  Receipt Date: 20140220
  Transmission Date: 20141002
  Serious: Yes (Death, Hospitalization)
  Sender: FDA-Public Use
  Company Number: US-ACTELION-A-NJ2014-94830

PATIENT
  Age: 70 Year
  Sex: Male

DRUGS (4)
  1. TRACLEER [Suspect]
     Indication: PULMONARY ARTERIAL HYPERTENSION
     Dosage: UNK
     Route: 048
     Dates: end: 20140207
  2. ADCIRCA [Concomitant]
  3. TYVASO [Concomitant]
  4. ASA [Concomitant]
     Dosage: 81 MG, UNK

REACTIONS (3)
  - Cardio-respiratory arrest [Fatal]
  - Loss of consciousness [Unknown]
  - Oxygen saturation abnormal [Unknown]
